FAERS Safety Report 19498543 (Version 2)
Quarter: 2021Q3

REPORT INFORMATION
  Report Type: Report from Study
  Country: ES (occurrence: ES)
  Receive Date: 20210706
  Receipt Date: 20210715
  Transmission Date: 20211014
  Serious: Yes (Death, Hospitalization)
  Sender: FDA-Public Use
  Company Number: ES-DSJP-DSE-2021-120858

PATIENT
  Age: 67 Year
  Sex: Male

DRUGS (3)
  1. PNEUMOCOCCAL 13 VALENT VACCINE [Suspect]
     Active Substance: PNEUMOCOCCAL 13-VALENT CONJUGATE VACCINE
     Indication: IMMUNISATION
     Dosage: 1 DF, SINGLE
     Route: 030
     Dates: start: 20171204, end: 20171204
  2. OPENVAS (OLMESARTAN MEDOXOMIL) [Suspect]
     Active Substance: OLMESARTAN MEDOXOMIL
     Indication: HYPERTENSION
     Dosage: UNK
     Route: 048
  3. OLODATEROL + TIOTROPIUM [Concomitant]
     Active Substance: OLODATEROL HYDROCHLORIDE\TIOTROPIUM BROMIDE MONOHYDRATE
     Indication: CHRONIC OBSTRUCTIVE PULMONARY DISEASE
     Dosage: UNK

REACTIONS (1)
  - Shock [Fatal]

NARRATIVE: CASE EVENT DATE: 20191102
